FAERS Safety Report 21212653 (Version 1)
Quarter: 2022Q3

REPORT INFORMATION
  Report Type: Spontaneous
  Country: US (occurrence: None)
  Receive Date: 20220813
  Receipt Date: 20220813
  Transmission Date: 20221027
  Serious: Yes (Hospitalization, Disabling, Other)
  Sender: FDA-Public Use
  Company Number: None

PATIENT
  Age: 32 Year
  Sex: Female
  Weight: 83.7 kg

DRUGS (1)
  1. LEVOFLOXACIN [Suspect]
     Active Substance: LEVOFLOXACIN
     Indication: Bronchitis
     Dosage: FREQUENCY : DAILY;?
     Route: 048
     Dates: start: 20200326, end: 20200326

REACTIONS (16)
  - Burning sensation [None]
  - Heart rate increased [None]
  - Hyperhidrosis [None]
  - Fatigue [None]
  - Tachyphrenia [None]
  - Fluid retention [None]
  - Anxiety [None]
  - Visual impairment [None]
  - Head discomfort [None]
  - Palpitations [None]
  - Obsessive-compulsive disorder [None]
  - Blood testosterone decreased [None]
  - Suicidal ideation [None]
  - Depression [None]
  - Neuropathy peripheral [None]
  - Heart rate irregular [None]

NARRATIVE: CASE EVENT DATE: 20200326
